FAERS Safety Report 8489465-6 (Version None)
Quarter: 2012Q3

REPORT INFORMATION
  Report Type: 
  Country: None (occurrence: None)
  Receive Date: 20120705
  Receipt Date: 20120625
  Transmission Date: 20120928
  Serious: Yes (Other)
  Sender: FDA-Public Use
  Company Number: FR-JNJFOC-20120607911

PATIENT
  Sex: Male
  Weight: 95 kg

DRUGS (2)
  1. PREDNISOLONE [Concomitant]
     Indication: PROPHYLAXIS
     Route: 048
     Dates: start: 20120330, end: 20120510
  2. ZYTIGA [Suspect]
     Indication: PROSTATE CANCER METASTATIC
     Dosage: 4 TABLETS OF 250 MG A DAY
     Route: 048
     Dates: start: 20120330, end: 20120510

REACTIONS (1)
  - ANGIOEDEMA [None]
